FAERS Safety Report 24657692 (Version 1)
Quarter: 2024Q4

REPORT INFORMATION
  Report Type: Spontaneous
  Country: CN (occurrence: CN)
  Receive Date: 20241125
  Receipt Date: 20241125
  Transmission Date: 20250115
  Serious: Yes (Hospitalization)
  Sender: AMGEN
  Company Number: None

PATIENT
  Age: 69 Year
  Sex: Female

DRUGS (5)
  1. IVABRADINE HYDROCHLORIDE [Suspect]
     Active Substance: IVABRADINE HYDROCHLORIDE
     Indication: Chemotherapy
     Dosage: 0.2 G, QD
     Route: 040
     Dates: start: 20230630, end: 20230707
  2. DAUNORUBICIN HYDROCHLORIDE [Suspect]
     Active Substance: DAUNORUBICIN HYDROCHLORIDE
     Indication: Chemotherapy
     Dosage: 80 MG, QD
     Route: 040
     Dates: start: 20230630, end: 20230703
  3. VINCRISTINE SULFATE [Suspect]
     Active Substance: VINCRISTINE SULFATE
     Indication: Chemotherapy
     Dosage: 2 MG, QD
     Route: 040
     Dates: start: 20230630, end: 20230701
  4. SODIUM CHLORIDE [Concomitant]
     Active Substance: SODIUM CHLORIDE
     Indication: Product used for unknown indication
     Dosage: 100 ML, BID
     Route: 040
     Dates: start: 20230630, end: 20230703
  5. SODIUM CHLORIDE [Concomitant]
     Active Substance: SODIUM CHLORIDE
     Dosage: 250 ML, QD
     Route: 040
     Dates: start: 20230630, end: 20230707

REACTIONS (3)
  - Myelosuppression [Recovering/Resolving]
  - Immune system disorder [Recovering/Resolving]
  - Incorrect route of product administration [Recovered/Resolved]

NARRATIVE: CASE EVENT DATE: 20230630
